FAERS Safety Report 6116496-3 (Version None)
Quarter: 2009Q1

REPORT INFORMATION
  Report Type: 
  Country: None (occurrence: None)
  Receive Date: 20090314
  Receipt Date: 20081215
  Transmission Date: 20090719
  Serious: No
  Sender: FDA-Public Use
  Company Number: US-ABBOTT-08P-163-0493031-00

PATIENT
  Sex: Female
  Weight: 61.29 kg

DRUGS (2)
  1. HUMIRA [Suspect]
     Indication: ANKYLOSING SPONDYLITIS
     Route: 058
     Dates: start: 20071001
  2. NAPROXEN [Concomitant]
     Indication: PAIN
     Dosage: AS REQUIRED
     Route: 048

REACTIONS (3)
  - ERYTHEMA [None]
  - INJECTION SITE PAIN [None]
  - URTICARIA [None]
